FAERS Safety Report 17824554 (Version 1)
Quarter: 2020Q2

REPORT INFORMATION
  Report Type: Spontaneous
  Country: DE (occurrence: DE)
  Receive Date: 20200526
  Receipt Date: 20200526
  Transmission Date: 20200714
  Serious: Yes (Hospitalization)
  Sender: FDA-Public Use
  Company Number: DE-ROCHE-2607156

PATIENT
  Age: 51 Year
  Sex: Female

DRUGS (5)
  1. PERTUZUMAB. [Suspect]
     Active Substance: PERTUZUMAB
     Indication: PRODUCT USED FOR UNKNOWN INDICATION
     Dosage: RECENT DOSE ON 24/FEB/2020
     Route: 065
  2. CYCLOPHOSPHAMID [Concomitant]
     Active Substance: CYCLOPHOSPHAMIDE
     Dosage: RECENT DOSE ON 30/DEC/2019
     Route: 065
  3. PACLITAXEL. [Suspect]
     Active Substance: PACLITAXEL
     Indication: PRODUCT USED FOR UNKNOWN INDICATION
     Dosage: RECENT DOSE ON 24/FEB/2020
     Route: 065
  4. TRASTUZUMAB. [Suspect]
     Active Substance: TRASTUZUMAB
     Indication: PRODUCT USED FOR UNKNOWN INDICATION
     Dosage: RECENT DOSE ON 24/FEB/2020
     Route: 065
  5. EPIRUBICIN [Concomitant]
     Active Substance: EPIRUBICIN
     Dosage: RECENT DOSE ON 30/DEC/2019
     Route: 065

REACTIONS (3)
  - Abdominal pain [Unknown]
  - General physical health deterioration [Unknown]
  - Abdominal pain lower [Unknown]
